FAERS Safety Report 24011801 (Version 1)
Quarter: 2024Q2

REPORT INFORMATION
  Report Type: Spontaneous
  Country: US (occurrence: US)
  Receive Date: 20240625
  Receipt Date: 20240625
  Transmission Date: 20240716
  Serious: No
  Sender: FDA-Public Use
  Company Number: US-009507513-2406USA003832

PATIENT

DRUGS (2)
  1. STERILE DILUENT (WATER) [Suspect]
     Active Substance: WATER
  2. STERILE DILUENT (WATER) [Suspect]
     Active Substance: WATER

REACTIONS (3)
  - Poor quality device used [Unknown]
  - Needle issue [Unknown]
  - No adverse event [Unknown]
